FAERS Safety Report 4323529-3 (Version None)
Quarter: 2004Q1

REPORT INFORMATION
  Report Type: 
  Country: None (occurrence: None)
  Receive Date: 20040324
  Receipt Date: 20040324
  Transmission Date: 20041129
  Serious: No
  Sender: FDA-Public Use
  Company Number: None

PATIENT
  Age: 61 Year
  Sex: Male
  Weight: 81.6475 kg

DRUGS (10)
  1. TAXOTERE [Suspect]
     Indication: LUNG NEOPLASM MALIGNANT
     Dosage: 40 MG WEEKLY INTRAVENOUS
     Route: 042
     Dates: start: 20040301, end: 20040322
  2. CELEBREX [Suspect]
     Dosage: 400 MG BID ORAL
     Route: 048
     Dates: start: 20040301, end: 20040323
  3. DEXAMETHASONE [Concomitant]
  4. DIPHENHYDRAMINE HCL [Concomitant]
  5. GRANISETRON [Concomitant]
  6. RANITIDINE [Concomitant]
  7. SERTRALINE HCL [Concomitant]
  8. DOCUSATE NA [Concomitant]
  9. OXYCODONE AND ACETAMINOPHEN [Concomitant]
  10. EXTERNAL BEAM RADIATION THERAPY [Concomitant]

REACTIONS (1)
  - HYPERSENSITIVITY [None]
